FAERS Safety Report 7598675-1 (Version None)
Quarter: 2011Q3

REPORT INFORMATION
  Report Type: 
  Country: None (occurrence: None)
  Receive Date: 20110711
  Receipt Date: 20110701
  Transmission Date: 20111222
  Serious: Yes (Hospitalization)
  Sender: FDA-Public Use
  Company Number: US-BIOGENIDEC-2011BI024250

PATIENT
  Age: 37 Year
  Sex: Female

DRUGS (3)
  1. AVONEX [Concomitant]
     Indication: MULTIPLE SCLEROSIS
     Route: 030
  2. TYSABRI [Suspect]
     Route: 042
     Dates: start: 20080417, end: 20090820
  3. TYSABRI [Suspect]
     Indication: MULTIPLE SCLEROSIS
     Route: 042
     Dates: start: 20100330

REACTIONS (7)
  - KIDNEY INFECTION [None]
  - FLUID INTAKE REDUCED [None]
  - LUNG INFECTION [None]
  - SEPSIS [None]
  - APHAGIA [None]
  - ARTHRALGIA [None]
  - ASTHENIA [None]
